FAERS Safety Report 10695666 (Version 1)
Quarter: 2014Q4

REPORT INFORMATION
  Report Type: Report from Study
  Country: US (occurrence: None)
  Receive Date: 20141223
  Receipt Date: 20141223
  Transmission Date: 20150529
  Serious: Yes (Death, Hospitalization)
  Sender: FDA-Public Use
  Company Number: CABO-14004758

PATIENT
  Age: 59 Year
  Sex: Female

DRUGS (2)
  1. COMETRIQ [Suspect]
     Active Substance: CABOZANTINIB S-MALATE
     Indication: BLADDER CANCER
     Route: 048
     Dates: start: 20140817
  2. ZOFRAN [Suspect]
     Active Substance: ONDANSETRON HYDROCHLORIDE

REACTIONS (15)
  - Wound [None]
  - Nausea [None]
  - Decreased appetite [None]
  - Constipation [None]
  - Blister [None]
  - Abdominal pain [None]
  - Malignant neoplasm progression [None]
  - Wound complication [None]
  - Skin ulcer [None]
  - Skin exfoliation [None]
  - Blood pressure systolic increased [None]
  - Stomatitis [None]
  - Cheilitis [None]
  - Oedema peripheral [None]
  - Off label use [None]

NARRATIVE: CASE EVENT DATE: 20140922
